FAERS Safety Report 17280124 (Version 3)
Quarter: 2020Q1

REPORT INFORMATION
  Report Type: Report from Study
  Country: JP (occurrence: JP)
  Receive Date: 20200117
  Receipt Date: 20200218
  Transmission Date: 20200409
  Serious: Yes (Hospitalization, Other)
  Sender: FDA-Public Use
  Company Number: NVSJ2020JP000455

PATIENT
  Age: 56 Year
  Sex: Female
  Weight: 78.9 kg

DRUGS (33)
  1. SIGNIFOR LAR [Suspect]
     Active Substance: PASIREOTIDE PAMOATE
     Dosage: 10 MG
     Route: 030
     Dates: start: 20181128
  2. SIGNIFOR LAR [Suspect]
     Active Substance: PASIREOTIDE PAMOATE
     Dosage: 10 MG
     Route: 030
     Dates: start: 20181226
  3. SIGNIFOR LAR [Suspect]
     Active Substance: PASIREOTIDE PAMOATE
     Dosage: 10 MG
     Route: 030
     Dates: start: 20190612
  4. SIGNIFOR LAR [Suspect]
     Active Substance: PASIREOTIDE PAMOATE
     Dosage: 10 MG
     Route: 030
     Dates: start: 20190710
  5. FLORINEF ACETATE [Concomitant]
     Active Substance: FLUDROCORTISONE ACETATE
     Indication: POSTOPERATIVE CARE
  6. SIGMART [Concomitant]
     Active Substance: NICORANDIL
     Indication: MYOCARDIAL ISCHAEMIA
     Dosage: 15 MG, UNK
     Route: 048
  7. BAYASPIRIN [Concomitant]
     Active Substance: ASPIRIN
     Indication: MYOCARDIAL ISCHAEMIA
     Dosage: 100 MG, UNK
     Route: 048
  8. LIOVEL [Concomitant]
     Active Substance: ALOGLIPTIN BENZOATE\PIOGLITAZONE HYDROCHLORIDE
     Indication: DIABETES MELLITUS
     Dosage: 1 DF, UNK
     Route: 048
  9. DECADRON [Concomitant]
     Active Substance: DEXAMETHASONE
     Indication: PITUITARY-DEPENDENT CUSHING^S SYNDROME
     Dosage: 0.25 MG, UNK
     Route: 048
  10. INSULIN GLARGINE [Concomitant]
     Active Substance: INSULIN GLARGINE
     Dosage: 28 U, UNK
     Route: 058
     Dates: start: 20190821
  11. SIGNIFOR LAR [Suspect]
     Active Substance: PASIREOTIDE PAMOATE
     Dosage: 10 MG
     Route: 030
     Dates: start: 20190220
  12. SIGNIFOR LAR [Suspect]
     Active Substance: PASIREOTIDE PAMOATE
     Dosage: 10 MG
     Route: 030
     Dates: start: 20191112
  13. DECADRON [Concomitant]
     Active Substance: DEXAMETHASONE
     Indication: POSTOPERATIVE CARE
  14. CLOPIDOGREL [Concomitant]
     Active Substance: CLOPIDOGREL BISULFATE
     Indication: MYOCARDIAL ISCHAEMIA
     Dosage: 50 MG, UNK
     Route: 048
  15. LIPITOR [Concomitant]
     Active Substance: ATORVASTATIN CALCIUM
     Indication: DYSLIPIDAEMIA
     Dosage: 10 MG, UNK
     Route: 048
  16. SIGNIFOR LAR [Suspect]
     Active Substance: PASIREOTIDE PAMOATE
     Dosage: 10 MG
     Route: 030
     Dates: start: 20190820
  17. FUROSEMIDE. [Concomitant]
     Active Substance: FUROSEMIDE
     Indication: MYOCARDIAL ISCHAEMIA
     Dosage: 20 MG, UNK
     Route: 048
  18. INSULIN GLARGINE [Concomitant]
     Active Substance: INSULIN GLARGINE
     Indication: DIABETES MELLITUS
     Dosage: 12 U, UNK
     Route: 058
     Dates: start: 20181128, end: 20181204
  19. ALFACALCIDOL [Concomitant]
     Active Substance: ALFACALCIDOL
     Indication: OSTEOPOROSIS
     Dosage: 0.25 UG, UNK
     Route: 048
  20. FLORINEF ACETATE [Concomitant]
     Active Substance: FLUDROCORTISONE ACETATE
     Indication: PITUITARY-DEPENDENT CUSHING^S SYNDROME
     Dosage: 0.05 MG, UNK
     Route: 048
  21. METGLUCO [Concomitant]
     Active Substance: METFORMIN HYDROCHLORIDE
     Indication: DIABETES MELLITUS
     Dosage: 1500 MG, UNK
     Route: 048
  22. RECALBON [Concomitant]
     Indication: OSTEOPOROSIS
     Dosage: 1.79 MG, UNK
     Route: 048
  23. SIGNIFOR LAR [Suspect]
     Active Substance: PASIREOTIDE PAMOATE
     Indication: PITUITARY-DEPENDENT CUSHING^S SYNDROME
     Dosage: 10 MG, UNK
     Route: 030
     Dates: start: 20181017
  24. SIGNIFOR LAR [Suspect]
     Active Substance: PASIREOTIDE PAMOATE
     Dosage: 10 MG
     Route: 030
     Dates: start: 20190320
  25. SIGNIFOR LAR [Suspect]
     Active Substance: PASIREOTIDE PAMOATE
     Dosage: 10 MG
     Route: 030
     Dates: start: 20190417
  26. SIGNIFOR LAR [Suspect]
     Active Substance: PASIREOTIDE PAMOATE
     Dosage: 10 MG
     Route: 030
     Dates: start: 20190918
  27. CABASER [Concomitant]
     Active Substance: CABERGOLINE
     Indication: PITUITARY-DEPENDENT CUSHING^S SYNDROME
     Dosage: 0.32 MG, UNK
     Route: 048
  28. LIPIDIL [Concomitant]
     Active Substance: FENOFIBRATE
     Indication: DYSLIPIDAEMIA
     Dosage: 106.6 MG, UNK
     Route: 048
  29. SIGNIFOR LAR [Suspect]
     Active Substance: PASIREOTIDE PAMOATE
     Dosage: 10 MG
     Route: 030
     Dates: start: 20190123
  30. SIGNIFOR LAR [Suspect]
     Active Substance: PASIREOTIDE PAMOATE
     Dosage: 10 MG
     Route: 030
     Dates: start: 20190515
  31. ZETIA [Concomitant]
     Active Substance: EZETIMIBE
     Indication: DYSLIPIDAEMIA
     Dosage: 10 MG, UNK
     Route: 048
  32. NEXIUM [Concomitant]
     Active Substance: ESOMEPRAZOLE MAGNESIUM
     Indication: GASTRITIS
     Dosage: 20 MG, UNK
     Route: 048
  33. INSULIN GLARGINE [Concomitant]
     Active Substance: INSULIN GLARGINE
     Indication: DIABETES MELLITUS
     Dosage: 24 U, UNK
     Route: 058
     Dates: start: 20181205, end: 20190820

REACTIONS (4)
  - Diabetes mellitus [Recovering/Resolving]
  - Pneumonia mycoplasmal [Recovered/Resolved]
  - Cough [Unknown]
  - Hyperglycaemia [Unknown]

NARRATIVE: CASE EVENT DATE: 20181114
